FAERS Safety Report 8908218 (Version 1)
Quarter: 2012Q4

REPORT INFORMATION
  Report Type: 
  Country: BR (occurrence: BR)
  Receive Date: 20121114
  Receipt Date: 20121114
  Transmission Date: 20130627
  Serious: Yes (Death)
  Sender: FDA-Public Use
  Company Number: PHHY2012BR104559

PATIENT
  Sex: Female

DRUGS (3)
  1. EXELON PATCH [Suspect]
     Indication: DEMENTIA ALZHEIMER^S TYPE
     Dosage: 4.6 mg/24 hs
     Route: 062
  2. STALEVO [Suspect]
     Indication: PARKINSON^S DISEASE
     Dosage: 200/100/25 mg, UNK
  3. STALEVO [Suspect]
     Dosage: 200/150/37.5 mg, UNK

REACTIONS (1)
  - Death [Fatal]
